FAERS Safety Report 10418503 (Version 1)
Quarter: 2014Q2

REPORT INFORMATION
  Report Type: Spontaneous
  Country: US (occurrence: None)
  Receive Date: 20140609
  Receipt Date: 20140609
  Transmission Date: 20141212
  Serious: No
  Sender: FDA-Public Use
  Company Number: 2014TUS002238

PATIENT
  Sex: 0

DRUGS (5)
  1. BRINTELLIX [Suspect]
     Route: 048
  2. ABILIFY (ARIPIPRAZOLE) [Concomitant]
  3. ZOFRAN (ONDANSETRON) [Concomitant]
  4. NUVIGIL (ARMODAFINIL) [Concomitant]
  5. ATIVAN (LORAZEPAM) [Concomitant]

REACTIONS (1)
  - Extrapyramidal disorder [None]
